FAERS Safety Report 7219878-1 (Version None)
Quarter: 2011Q1

REPORT INFORMATION
  Report Type: 
  Country: None (occurrence: None)
  Receive Date: 20110111
  Receipt Date: 20110103
  Transmission Date: 20110831
  Serious: Yes (Hospitalization)
  Sender: FDA-Public Use
  Company Number: FR-ASTRAZENECA-2011SE00779

PATIENT
  Sex: Male

DRUGS (5)
  1. CRESTOR [Suspect]
     Route: 048
     Dates: start: 20100127
  2. DOLIPRANE [Suspect]
     Route: 048
     Dates: start: 20100127
  3. COUMADIN [Suspect]
     Route: 048
     Dates: start: 20100127
  4. SPIRIVA [Suspect]
     Route: 065
     Dates: start: 20100127
  5. CARDENSIEL [Suspect]
     Route: 048
     Dates: start: 20100127

REACTIONS (1)
  - EPISTAXIS [None]
